FAERS Safety Report 9619633 (Version 1)
Quarter: 2013Q4

REPORT INFORMATION
  Report Type: Spontaneous
  Country: US (occurrence: US)
  Receive Date: 20131014
  Receipt Date: 20131014
  Transmission Date: 20140711
  Serious: Yes (Other)
  Sender: FDA-Public Use
  Company Number: US-UCBSA-099580

PATIENT
  Age: 52 Year
  Sex: Female

DRUGS (1)
  1. CIMZIA [Suspect]
     Route: 058
     Dates: start: 20130626

REACTIONS (3)
  - Anaemia [Unknown]
  - Heart rate increased [Not Recovered/Not Resolved]
  - Inappropriate schedule of drug administration [Unknown]
